FAERS Safety Report 7005727-3 (Version None)
Quarter: 2010Q3

REPORT INFORMATION
  Report Type: 
  Country: None (occurrence: None)
  Receive Date: 20100921
  Receipt Date: 20100910
  Transmission Date: 20110219
  Serious: Yes (Hospitalization)
  Sender: FDA-Public Use
  Company Number: JP-MERCK-1009USA03330

PATIENT
  Age: 71 Year
  Sex: Male

DRUGS (6)
  1. COZAAR [Suspect]
     Dosage: DIVIDED DOSE FREQUENCY
     Route: 048
     Dates: start: 20100728, end: 20100803
  2. COZAAR [Suspect]
     Dosage: DIVIDED DOSE FREQUENCY
     Route: 048
     Dates: start: 20100804
  3. SELARA [Concomitant]
     Dosage: DIVIDED DOSE FREQUENCY
     Route: 048
  4. LASIX [Concomitant]
     Dosage: DIVIDED DOSE FREQUENCY
     Route: 065
  5. ALOSITOL [Concomitant]
     Dosage: DIVIDED DOSE FREQUENCY
     Route: 048
  6. ZYLORIC [Concomitant]
     Dosage: DIVIDED DOSE FREQUENCY
     Route: 048

REACTIONS (1)
  - EOSINOPHILIC PNEUMONIA [None]
